FAERS Safety Report 7076434-6 (Version None)
Quarter: 2010Q4

REPORT INFORMATION
  Report Type: 
  Country: None (occurrence: None)
  Receive Date: 20101022
  Receipt Date: 20101012
  Transmission Date: 20110411
  Serious: Yes (Hospitalization, Other)
  Sender: FDA-Public Use
  Company Number: JPI-P-012542

PATIENT
  Age: 35 Year
  Sex: Male

DRUGS (3)
  1. XYREM [Suspect]
     Indication: NARCOLEPSY
     Dosage: 4.5 GM (2.25 GM, 2 IN 1 D), ORAL; 7 GM (3.5 GM, 2 IN 1 D), ORAL
     Route: 048
     Dates: start: 20080502, end: 20090107
  2. XYREM [Suspect]
     Indication: NARCOLEPSY
     Dosage: 4.5 GM (2.25 GM, 2 IN 1 D), ORAL; 7 GM (3.5 GM, 2 IN 1 D), ORAL
     Route: 048
     Dates: start: 20090108
  3. MODAFINIL [Concomitant]

REACTIONS (6)
  - ARTHRALGIA [None]
  - CONDITION AGGRAVATED [None]
  - INTERVERTEBRAL DISC PROTRUSION [None]
  - MUSCLE SPASMS [None]
  - MUSCLE TIGHTNESS [None]
  - NO THERAPEUTIC RESPONSE [None]
